FAERS Safety Report 7439621-0 (Version None)
Quarter: 2011Q2

REPORT INFORMATION
  Report Type: 
  Country: None (occurrence: None)
  Receive Date: 20110427
  Receipt Date: 20110412
  Transmission Date: 20111010
  Serious: Yes (Life-Threatening)
  Sender: FDA-Public Use
  Company Number: DE-BAYER-2011-031786

PATIENT
  Age: 72 Year
  Sex: Female

DRUGS (3)
  1. FACTOR VIIA [Suspect]
  2. KOGENATE [Suspect]
  3. PREDNISOLONE [Concomitant]

REACTIONS (1)
  - OBSTRUCTIVE AIRWAYS DISORDER [None]
